FAERS Safety Report 7199464-2 (Version None)
Quarter: 2010Q4

REPORT INFORMATION
  Report Type: 
  Country: None (occurrence: None)
  Receive Date: 20101228
  Receipt Date: 20101214
  Transmission Date: 20110411
  Serious: Yes (Hospitalization, Other)
  Sender: FDA-Public Use
  Company Number: PHHY2010FR80364

PATIENT
  Sex: Male
  Weight: 60 kg

DRUGS (2)
  1. EXJADE [Suspect]
     Indication: TRANSFUSION
     Dosage: 500 MG, DAILY
     Dates: end: 20101101
  2. EXJADE [Suspect]
     Dosage: 1 G, QD
     Dates: start: 20100501, end: 20101101

REACTIONS (6)
  - APHTHOUS STOMATITIS [None]
  - FEEDING DISORDER [None]
  - LEUKOCYTOCLASTIC VASCULITIS [None]
  - MUCOSAL INFLAMMATION [None]
  - SKIN NECROSIS [None]
  - WEIGHT DECREASED [None]
